FAERS Safety Report 24954080 (Version 4)
Quarter: 2025Q2

REPORT INFORMATION
  Report Type: Report from Study
  Country: US (occurrence: US)
  Receive Date: 20250211
  Receipt Date: 20250516
  Transmission Date: 20250716
  Serious: No
  Sender: TAKEDA
  Company Number: US-TAKEDA-US201914826

PATIENT
  Age: 27 Year
  Sex: Female
  Weight: 52 kg

DRUGS (14)
  1. ECALLANTIDE [Suspect]
     Active Substance: ECALLANTIDE
     Indication: Hereditary angioedema
  2. ECALLANTIDE [Suspect]
     Active Substance: ECALLANTIDE
     Indication: Immune system disorder
  3. ECALLANTIDE [Suspect]
     Active Substance: ECALLANTIDE
  4. ECALLANTIDE [Suspect]
     Active Substance: ECALLANTIDE
  5. ECALLANTIDE [Suspect]
     Active Substance: ECALLANTIDE
  6. ECALLANTIDE [Suspect]
     Active Substance: ECALLANTIDE
  7. TAKHZYRO [Suspect]
     Active Substance: LANADELUMAB-FLYO
     Indication: Immune system disorder
     Dosage: 300 MILLIGRAM, Q2WEEKS
     Dates: start: 202409
  8. TAKHZYRO [Suspect]
     Active Substance: LANADELUMAB-FLYO
  9. TAKHZYRO [Suspect]
     Active Substance: LANADELUMAB-FLYO
  10. HAEGARDA [Suspect]
     Active Substance: HUMAN C1-ESTERASE INHIBITOR
     Indication: Product used for unknown indication
  11. EPINEPHRINE [Concomitant]
     Active Substance: EPINEPHRINE
     Indication: Product used for unknown indication
  12. CELEXA [Concomitant]
     Active Substance: CITALOPRAM HYDROBROMIDE
     Indication: Product used for unknown indication
  13. LEVOTHYROXINE [Concomitant]
     Active Substance: LEVOTHYROXINE
     Indication: Product used for unknown indication
  14. ABILIFY [Concomitant]
     Active Substance: ARIPIPRAZOLE
     Indication: Product used for unknown indication

REACTIONS (3)
  - Weight increased [Unknown]
  - Weight decreased [Unknown]
  - Hereditary angioedema [Unknown]

NARRATIVE: CASE EVENT DATE: 20240909
